FAERS Safety Report 9331113 (Version 1)
Quarter: 2013Q2

REPORT INFORMATION
  Report Type: Spontaneous
  Country: CH (occurrence: None)
  Receive Date: 20130531
  Receipt Date: 20130531
  Transmission Date: 20140414
  Serious: Yes (Hospitalization)
  Sender: FDA-Public Use
  Company Number: 2013050080

PATIENT
  Age: 44 Year
  Sex: Male
  Weight: 103 kg

DRUGS (11)
  1. TOREM [Suspect]
     Route: 048
     Dates: start: 20130311, end: 20130323
  2. PONSTAN [Suspect]
     Dosage: (250 MG 3 IN 1 D
     Route: 048
     Dates: start: 20130304, end: 20130323
  3. ADALAT [Concomitant]
  4. SANDIMMUN (CICLOSPORIN) INFUSION [Concomitant]
  5. PREDNISONE [Concomitant]
  6. VALTREX [Concomitant]
  7. DIFLUCAN [Concomitant]
  8. NOPIL [Concomitant]
  9. PANTOZOL [Concomitant]
  10. CIPRALEX [Concomitant]
  11. TRITTICO [Concomitant]

REACTIONS (7)
  - Thrombocytopenia [None]
  - Renal failure acute [None]
  - Procedural haemorrhage [None]
  - Subcutaneous haematoma [None]
  - Dehydration [None]
  - Anaemia postoperative [None]
  - Haemorrhagic anaemia [None]
